FAERS Safety Report 5136479-X (Version None)
Quarter: 2006Q4

REPORT INFORMATION
  Report Type: 
  Country: None (occurrence: None)
  Receive Date: 20061027
  Receipt Date: 20061016
  Transmission Date: 20070319
  Serious: Yes (Hospitalization)
  Sender: FDA-Public Use
  Company Number: US-JNJFOC-20061005410

PATIENT
  Sex: Male
  Weight: 82.2 kg

DRUGS (11)
  1. NESIRITIDE [Suspect]
     Indication: VENTRICULAR DYSFUNCTION
     Route: 058
  2. ASPIRIN [Suspect]
     Route: 048
  3. ASPIRIN [Suspect]
     Indication: ANTICOAGULANT THERAPY
     Route: 048
  4. PLAVIX [Suspect]
     Route: 048
  5. PLAVIX [Suspect]
     Indication: THROMBOSIS PROPHYLAXIS
     Route: 048
  6. VALSARTAN [Concomitant]
     Indication: CARDIAC FAILURE CONGESTIVE
     Route: 048
  7. OMEPRAZOLE [Concomitant]
     Indication: ULCER
     Route: 048
  8. ALLOPURINOL [Concomitant]
     Indication: GOUT
     Route: 048
  9. ATENOLOL [Concomitant]
     Indication: CARDIAC DISORDER
     Route: 048
  10. NIACIN [Concomitant]
     Indication: HYPERLIPIDAEMIA
     Route: 048
  11. LOVASTATIN [Concomitant]
     Indication: HYPERLIPIDAEMIA
     Route: 048

REACTIONS (1)
  - HAEMATURIA [None]
